FAERS Safety Report 15454855 (Version 1)
Quarter: 2018Q3

REPORT INFORMATION
  Report Type: Spontaneous
  Country: US (occurrence: US)
  Receive Date: 20180927
  Receipt Date: 20180927
  Transmission Date: 20181010
  Serious: Yes (Hospitalization)
  Sender: FDA-Public Use
  Company Number: None

PATIENT
  Age: 29 Month
  Sex: Male
  Weight: 13.5 kg

DRUGS (3)
  1. CARBOPLATIN. [Suspect]
     Active Substance: CARBOPLATIN
     Dates: end: 20090612
  2. MELPHALAN. [Suspect]
     Active Substance: MELPHALAN
     Dates: end: 20090611
  3. ETOPOSIDE (VP?16) [Suspect]
     Active Substance: ETOPOSIDE
     Dates: end: 20090612

REACTIONS (9)
  - Pyelonephritis [None]
  - Activated partial thromboplastin time prolonged [None]
  - Hepatomegaly [None]
  - Ascites [None]
  - Venoocclusive liver disease [None]
  - Blood bilirubin increased [None]
  - Stem cell transplant [None]
  - Nephropathy [None]
  - Weight increased [None]

NARRATIVE: CASE EVENT DATE: 20091223
